FAERS Safety Report 24435032 (Version 1)
Quarter: 2024Q4

REPORT INFORMATION
  Report Type: Spontaneous
  Country: SI (occurrence: SI)
  Receive Date: 20241014
  Receipt Date: 20241014
  Transmission Date: 20250115
  Serious: Yes (Other)
  Sender: ABBVIE
  Company Number: SI-JNJFOC-20241008572

PATIENT
  Age: 61 Year

DRUGS (4)
  1. IMBRUVICA [Suspect]
     Active Substance: IBRUTINIB
     Indication: Chronic lymphocytic leukaemia
     Route: 048
     Dates: start: 2021, end: 2022
  2. VENETOCLAX [Suspect]
     Active Substance: VENETOCLAX
     Indication: Chronic lymphocytic leukaemia
     Route: 048
  3. POTASSIUM HYDROXIDE [Concomitant]
     Active Substance: POTASSIUM HYDROXIDE
     Indication: Product used for unknown indication
     Dates: start: 202207, end: 202209
  4. CYCLOPHOSPHAMIDE\DOXORUBICIN\PREDNISONE\RITUXIMAB\VINCRISTINE [Suspect]
     Active Substance: CYCLOPHOSPHAMIDE\DOXORUBICIN\PREDNISONE\RITUXIMAB\VINCRISTINE
     Indication: Chronic lymphocytic leukaemia
     Route: 065

REACTIONS (5)
  - Atrial fibrillation [Unknown]
  - Thrombocytopenia [Unknown]
  - Hyperhidrosis [Unknown]
  - Pancytopenia [Unknown]
  - Pyrexia [Unknown]
